FAERS Safety Report 7097198-6 (Version None)
Quarter: 2010Q4

REPORT INFORMATION
  Report Type: 
  Country: None (occurrence: None)
  Receive Date: 20101111
  Receipt Date: 20101108
  Transmission Date: 20110411
  Serious: Yes (Death, Other)
  Sender: FDA-Public Use
  Company Number: NO-PFIZER INC-2010142465

PATIENT
  Sex: Male

DRUGS (4)
  1. MEDROL [Suspect]
     Indication: INTRACRANIAL PRESSURE INCREASED
     Dosage: 8 MG, 3X/DAY
     Dates: start: 20100901
  2. MEDROL [Suspect]
     Dosage: 8 + 4 + 4MG PER DAY
     Dates: end: 20101019
  3. MEDROL [Suspect]
     Dosage: UNK
     Dates: end: 20100831
  4. MEDROL [Suspect]
     Dosage: 8 MG, 3X/DAY
     Dates: start: 20101020

REACTIONS (3)
  - CONDITION AGGRAVATED [None]
  - DIZZINESS [None]
  - INFECTION [None]
